FAERS Safety Report 13784563 (Version 1)
Quarter: 2017Q3

REPORT INFORMATION
  Report Type: Spontaneous
  Country: US (occurrence: US)
  Receive Date: 20170724
  Receipt Date: 20170724
  Transmission Date: 20171127
  Serious: No
  Sender: FDA-Public Use
  Company Number: US-IMPAX LABORATORIES, INC-2017-IPXL-01294

PATIENT
  Age: 77 Year
  Sex: Female
  Weight: 51 kg

DRUGS (2)
  1. RYTARY [Suspect]
     Active Substance: CARBIDOPA\LEVODOPA
     Indication: PARKINSON^S DISEASE
     Dosage: 36.25/145MG, 2 CAPSULES, 4 /DAY
     Route: 048
     Dates: start: 20170426
  2. AZILECT [Concomitant]
     Active Substance: RASAGILINE MESYLATE
     Indication: PARKINSON^S DISEASE
     Dosage: UNK
     Route: 065

REACTIONS (3)
  - Euphoric mood [Recovered/Resolved]
  - Hyperventilation [Recovered/Resolved]
  - Adverse event [Unknown]

NARRATIVE: CASE EVENT DATE: 2017
